FAERS Safety Report 13257919 (Version 2)
Quarter: 2017Q1

REPORT INFORMATION
  Report Type: Report from Study
  Country: None (occurrence: DE)
  Receive Date: 20170221
  Receipt Date: 20170228
  Transmission Date: 20170428
  Serious: Yes (Hospitalization)
  Sender: FDA-Public Use
  Company Number: DE-ABBVIE-17P-062-1882426-00

PATIENT
  Age: 67 Year
  Sex: Female

DRUGS (2)
  1. BISOPROLOL PLUS [Concomitant]
     Indication: PRODUCT USED FOR UNKNOWN INDICATION
     Dosage: 10/25
  2. DUODOPA [Suspect]
     Active Substance: CARBIDOPA\LEVODOPA
     Indication: PARKINSON^S DISEASE
     Dosage: MD 7.5 ML; CRD 2.4 ML/ H; ED 2 ML
     Route: 050
     Dates: start: 20120416

REACTIONS (1)
  - Hyperkinesia [Unknown]

NARRATIVE: CASE EVENT DATE: 201702
